FAERS Safety Report 10216328 (Version 1)
Quarter: 2014Q2

REPORT INFORMATION
  Report Type: Spontaneous
  Country: US (occurrence: None)
  Receive Date: 20140603
  Receipt Date: 20140603
  Transmission Date: 20141212
  Serious: No
  Sender: FDA-Public Use
  Company Number: None

PATIENT
  Age: 23 Year
  Sex: Female
  Weight: 109.77 kg

DRUGS (1)
  1. MIRENA IUD [Suspect]

REACTIONS (3)
  - Device expulsion [None]
  - Vaginal haemorrhage [None]
  - Infertility female [None]
